FAERS Safety Report 9423736 (Version 2)
Quarter: 2013Q3

REPORT INFORMATION
  Report Type: Report from Study
  Country: BR (occurrence: BR)
  Receive Date: 20130728
  Receipt Date: 20130823
  Transmission Date: 20140515
  Serious: Yes (Other)
  Sender: FDA-Public Use
  Company Number: PHHY2013BR079030

PATIENT
  Age: 48 Year
  Sex: Male
  Weight: 74 kg

DRUGS (6)
  1. GILENYA [Suspect]
     Indication: MULTIPLE SCLEROSIS
     Dosage: 0.5 MG, QD
     Route: 048
     Dates: start: 20130301
  2. GUARANA [Concomitant]
     Dosage: 500 MG, QW
  3. ALENDRONATE [Concomitant]
     Indication: OSTEOPOROSIS
     Dosage: 1 DF, QW
     Route: 048
  4. OSCAL D [Concomitant]
     Indication: OSTEOPOROSIS
     Dosage: 1 DF, QD
     Route: 048
  5. AD-TIL [Concomitant]
     Dosage: 3 DF, QD
     Route: 048
  6. FAMPYRA [Concomitant]
     Indication: MULTIPLE SCLEROSIS
     Dosage: 2 DF, QD
     Route: 048

REACTIONS (13)
  - Nystagmus [Not Recovered/Not Resolved]
  - Dizziness [Not Recovered/Not Resolved]
  - Feeling abnormal [Not Recovered/Not Resolved]
  - Coordination abnormal [Not Recovered/Not Resolved]
  - Quadriplegia [Not Recovered/Not Resolved]
  - Gait disturbance [Not Recovered/Not Resolved]
  - Grip strength decreased [Not Recovered/Not Resolved]
  - Fatigue [Not Recovered/Not Resolved]
  - Fall [Not Recovered/Not Resolved]
  - Urinary retention [Not Recovered/Not Resolved]
  - Urinary incontinence [Not Recovered/Not Resolved]
  - Asthenia [Not Recovered/Not Resolved]
  - Condition aggravated [Not Recovered/Not Resolved]
